FAERS Safety Report 20728115 (Version 1)
Quarter: 2022Q2

REPORT INFORMATION
  Report Type: Spontaneous
  Country: NL (occurrence: NL)
  Receive Date: 20220420
  Receipt Date: 20220420
  Transmission Date: 20220721
  Serious: Yes (Other)
  Sender: FDA-Public Use
  Company Number: NL-LRB-00798432

PATIENT
  Age: 82 Year
  Sex: Male
  Weight: 89 kg

DRUGS (7)
  1. TAMSULOSIN [Suspect]
     Active Substance: TAMSULOSIN
     Indication: Prostatic disorder
     Dosage: 1X PER DAY
     Route: 065
     Dates: start: 20220303, end: 20220313
  2. BISOPROLOL TABLET   2,5MG / Brand name not specifiedBISOPROLOL TABL... [Concomitant]
     Indication: Product used for unknown indication
     Dosage: TABLET, 2,5 MG (MILLIGRAM) ()
     Route: 065
  3. SIMVASTATIN [Concomitant]
     Active Substance: SIMVASTATIN
     Indication: Product used for unknown indication
     Dosage: FILM-COATED TABLET, 40 MG (MILLIGRAM) ()
     Route: 065
  4. DESLORATADINE TABLET 5MG / Brand name not specifiedDESLORATADINE TA... [Concomitant]
     Indication: Product used for unknown indication
     Dosage: TABLET, 5 MG (MILLIGRAM) ()
     Route: 065
  5. EZETIMIB TABLET 10MG / Brand name not specifiedEZETIMIB TABLET 10MG [Concomitant]
     Indication: Product used for unknown indication
     Dosage: TABLET, 10 MG (MILLIGRAM) ()
     Route: 065
  6. AMLODIPINE BESILAAT / Brand name not specifiedAMLODIPINE BESILAAT [Concomitant]
     Indication: Product used for unknown indication
     Dosage: 2,5 MG ()
     Route: 065
  7. BUDESONIDE/FORMOTEROL AEROSOL 200/6UG/DO / SYMBICORT AEROSOL 200/6M... [Concomitant]
     Indication: Product used for unknown indication
     Dosage: AEROSOL, 200/6 ?G/DOSIS (MICROGRAM PER DOSIS) ()
     Route: 065

REACTIONS (9)
  - Haemorrhagic diathesis [Recovering/Resolving]
  - Malaise [Recovering/Resolving]
  - Chills [Recovering/Resolving]
  - Rash papular [Recovering/Resolving]
  - Rash macular [Recovering/Resolving]
  - Listless [Recovering/Resolving]
  - Back pain [Recovering/Resolving]
  - Insomnia [Recovering/Resolving]
  - Peripheral swelling [Recovering/Resolving]

NARRATIVE: CASE EVENT DATE: 20220310
